FAERS Safety Report 25913316 (Version 8)
Quarter: 2025Q4

REPORT INFORMATION
  Report Type: Spontaneous
  Country: GB (occurrence: GB)
  Receive Date: 20251013
  Receipt Date: 20251210
  Transmission Date: 20260117
  Serious: Yes (Hospitalization, Other)
  Sender: MYLAN
  Company Number: GB-MYLANLABS-2025M1086207

PATIENT
  Age: 54 Year
  Sex: Male

DRUGS (7)
  1. CLOZARIL [Suspect]
     Active Substance: CLOZAPINE
     Indication: Schizophrenia
     Dosage: UNK
  2. CLOZARIL [Suspect]
     Active Substance: CLOZAPINE
     Dosage: 400 MILLIGRAM, PM (ON (PRIOR TO 21/10/25)
  3. CLOZARIL [Suspect]
     Active Substance: CLOZAPINE
     Dosage: UNK, BID (100MG OM AND 200MG ON)
  4. SENNA [Concomitant]
     Active Substance: SENNOSIDES
     Dosage: 15 MILLIGRAM, PM (ON)
  5. DOCUSATE [Concomitant]
     Active Substance: DOCUSATE
     Dosage: 100 MILLIGRAM, TID
  6. OMEPRAZOLE [Concomitant]
     Active Substance: OMEPRAZOLE
     Dosage: 20 MILLIGRAM, QD (GR)
  7. LEVOTHYROXINE [Concomitant]
     Active Substance: LEVOTHYROXINE
     Dosage: 25 MICROGRAM, AM

REACTIONS (9)
  - Hospitalisation [Unknown]
  - Mental impairment [Unknown]
  - Anaemia [Unknown]
  - Neutropenia [Not Recovered/Not Resolved]
  - Thrombocytopenia [Recovering/Resolving]
  - Hypothyroidism [Unknown]
  - Malaise [Unknown]
  - White blood cell count decreased [Not Recovered/Not Resolved]
  - Eosinophil count decreased [Not Recovered/Not Resolved]

NARRATIVE: CASE EVENT DATE: 20251007
